FAERS Safety Report 5732424-4 (Version None)
Quarter: 2008Q2

REPORT INFORMATION
  Report Type: 
  Country: None (occurrence: None)
  Receive Date: 20080507
  Receipt Date: 20080430
  Transmission Date: 20081010
  Serious: Yes (Hospitalization)
  Sender: FDA-Public Use
  Company Number: 062-C5013-08042051

PATIENT
  Age: 81 Year
  Sex: Male
  Weight: 60 kg

DRUGS (4)
  1. CC-5013/PLACEBO (LENALIDOMIDE) [Suspect]
     Indication: MULTIPLE MYELOMA
     Dosage: ORAL
     Route: 048
     Dates: start: 20080314, end: 20080425
  2. MELPHALAN (MELPHALAN) [Suspect]
     Indication: MULTIPLE MYELOMA
     Dates: start: 20080314, end: 20080414
  3. PREDNISONE TAB [Suspect]
     Indication: MULTIPLE MYELOMA
     Dates: start: 20080314, end: 20080414
  4. RED CELLS (RED BLOOD CELLS) [Concomitant]

REACTIONS (2)
  - ACUTE CORONARY SYNDROME [None]
  - NEUTROPENIA [None]
